FAERS Safety Report 16544006 (Version 1)
Quarter: 2019Q3

REPORT INFORMATION
  Report Type: Spontaneous
  Country: US (occurrence: US)
  Receive Date: 20190709
  Receipt Date: 20190709
  Transmission Date: 20191004
  Serious: No
  Sender: FDA-Public Use
  Company Number: US-TEVA-2019-US-1072439

PATIENT
  Sex: Female

DRUGS (1)
  1. AUSTEDO [Suspect]
     Active Substance: DEUTETRABENAZINE
     Route: 065

REACTIONS (5)
  - Insurance issue [Unknown]
  - Product dispensing error [Unknown]
  - Feeling abnormal [Unknown]
  - Therapy cessation [Unknown]
  - Incorrect dose administered [Unknown]
